FAERS Safety Report 4350393-9 (Version None)
Quarter: 2004Q2

REPORT INFORMATION
  Report Type: 
  Country: None (occurrence: None)
  Receive Date: 20040428
  Receipt Date: 20040428
  Transmission Date: 20050107
  Serious: Yes (Hospitalization)
  Sender: FDA-Public Use
  Company Number: None

PATIENT
  Age: 84 Year
  Sex: Male
  Weight: 73.8 kg

DRUGS (13)
  1. FLUOXETINE [Suspect]
     Indication: DEPRESSION
     Dosage: 20 MG QD
     Dates: start: 20040301, end: 20040317
  2. BETAXOLOL HCL [Concomitant]
  3. SIMVASTATIN [Concomitant]
  4. ASPIRIN [Concomitant]
  5. HYDROCORTISONE [Concomitant]
  6. RANITIDINE HCL [Concomitant]
  7. SENNOSIDES [Concomitant]
  8. NITROGLYCERIN [Concomitant]
  9. ADALAT CC [Concomitant]
  10. HYDROCHLOROTHIAZIDE [Concomitant]
  11. LISINOPRIL [Concomitant]
  12. ATENOLOL [Concomitant]
  13. IBUPROFEN [Concomitant]

REACTIONS (2)
  - ELECTROCARDIOGRAM QT PROLONGED [None]
  - VENTRICULAR EXTRASYSTOLES [None]
